FAERS Safety Report 16718138 (Version 2)
Quarter: 2020Q1

REPORT INFORMATION
  Report Type: Report from Study
  Country: JP (occurrence: JP)
  Receive Date: 20190819
  Receipt Date: 20200121
  Transmission Date: 20200409
  Serious: Yes (Hospitalization, Disabling)
  Sender: FDA-Public Use
  Company Number: JP-BIOGEN-2019BI00775499

PATIENT
  Age: 61 Year
  Sex: Female
  Weight: 46.5 kg

DRUGS (4)
  1. TECFIDERA [Suspect]
     Active Substance: DIMETHYL FUMARATE
     Indication: CLINICALLY ISOLATED SYNDROME
     Route: 048
     Dates: start: 20190705, end: 20190718
  2. RIVOTRIL [Concomitant]
     Active Substance: CLONAZEPAM
     Indication: CLINICALLY ISOLATED SYNDROME
     Route: 065
  3. ETIZOLAM [Concomitant]
     Active Substance: ETIZOLAM
     Indication: ANXIETY DISORDER
     Route: 065
     Dates: start: 20190802
  4. TECFIDERA [Suspect]
     Active Substance: DIMETHYL FUMARATE
     Route: 048
     Dates: start: 20190719, end: 20190809

REACTIONS (2)
  - Mobility decreased [Unknown]
  - Depression [Recovered/Resolved with Sequelae]

NARRATIVE: CASE EVENT DATE: 2019
